FAERS Safety Report 8606189-2 (Version None)
Quarter: 2012Q3

REPORT INFORMATION
  Report Type: 
  Country: None (occurrence: None)
  Receive Date: 20120820
  Receipt Date: 19960716
  Transmission Date: 20120928
  Serious: Yes (Other)
  Sender: FDA-Public Use
  Company Number: US-ROCHE-1101375

PATIENT
  Sex: Male

DRUGS (5)
  1. HEPARIN [Concomitant]
  2. ACTIVASE [Suspect]
     Indication: ACUTE MYOCARDIAL INFARCTION
  3. MORPHINE SULFATE [Concomitant]
  4. NITROGLYCERIN [Concomitant]
     Route: 042
  5. ASPIRIN [Concomitant]

REACTIONS (3)
  - PAIN [None]
  - TREATMENT FAILURE [None]
  - BRADYCARDIA [None]
